FAERS Safety Report 13045506 (Version 1)
Quarter: 2016Q4

REPORT INFORMATION
  Report Type: Spontaneous
  Country: US (occurrence: US)
  Receive Date: 20161220
  Receipt Date: 20161220
  Transmission Date: 20170207
  Serious: Yes (Hospitalization)
  Sender: FDA-Public Use
  Company Number: None

PATIENT
  Age: 19 Year
  Sex: Male
  Weight: 56.5 kg

DRUGS (1)
  1. CISPLATIN. [Suspect]
     Active Substance: CISPLATIN
     Dates: end: 20161121

REACTIONS (4)
  - Flank pain [None]
  - Pneumatosis intestinalis [None]
  - Staphylococcal infection [None]
  - Pneumonia [None]

NARRATIVE: CASE EVENT DATE: 20161202
